FAERS Safety Report 12214521 (Version 2)
Quarter: 2016Q2

REPORT INFORMATION
  Report Type: Spontaneous
  Country: US (occurrence: US)
  Receive Date: 20160328
  Receipt Date: 20160511
  Transmission Date: 20160815
  Serious: Yes (Death)
  Sender: FDA-Public Use
  Company Number: US-ASTELLAS-2016US011606

PATIENT
  Sex: Male

DRUGS (4)
  1. XTANDI [Suspect]
     Active Substance: ENZALUTAMIDE
     Indication: PROSTATE CANCER STAGE IV
     Route: 048
     Dates: start: 20150514
  2. TRELSTAR [Suspect]
     Active Substance: TRIPTORELIN PAMOATE
     Indication: PROSTATE CANCER STAGE IV
     Dosage: UNK, UNKNOWN FREQ.
     Route: 065
     Dates: start: 201412
  3. CALCIUM WITH VITAMIN D3 [Concomitant]
     Active Substance: CALCIUM CARBONATE\CHOLECALCIFEROL
     Indication: PRODUCT USED FOR UNKNOWN INDICATION
     Dosage: 1500 MG-500 UNIT, UNKNOWN FREQ.
     Route: 065
  4. XGEVA [Suspect]
     Active Substance: DENOSUMAB
     Indication: PROSTATE CANCER STAGE IV
     Dosage: UNK, UNKNOWN FREQ.
     Route: 065
     Dates: start: 201501

REACTIONS (3)
  - Treatment noncompliance [Unknown]
  - Prostatic specific antigen increased [Unknown]
  - Death [Fatal]
